FAERS Safety Report 15298389 (Version 3)
Quarter: 2018Q4

REPORT INFORMATION
  Report Type: Spontaneous
  Country: US (occurrence: US)
  Receive Date: 20180820
  Receipt Date: 20181107
  Transmission Date: 20190204
  Serious: Yes (Other)
  Sender: FDA-Public Use
  Company Number: US-BAUSCH-BL-2018-022611

PATIENT
  Age: 56 Year
  Sex: Female

DRUGS (1)
  1. LATANOPROST. [Suspect]
     Active Substance: LATANOPROST
     Indication: GLAUCOMA
     Route: 065

REACTIONS (5)
  - Corneal oedema [Unknown]
  - Corneal opacity [Unknown]
  - Corneal striae [Unknown]
  - Iritis [Unknown]
  - Product dispensing error [Unknown]
